FAERS Safety Report 9580922 (Version 2)
Quarter: 2013Q4

REPORT INFORMATION
  Report Type: Spontaneous
  Country: US (occurrence: US)
  Receive Date: 20131002
  Receipt Date: 20131113
  Transmission Date: 20140711
  Serious: No
  Sender: FDA-Public Use
  Company Number: US-PFIZER INC-2013278690

PATIENT
  Age: 71 Year
  Sex: Female
  Weight: 90.7 kg

DRUGS (9)
  1. NORVASC [Suspect]
     Indication: HYPERTENSION
     Dosage: UNK, 1X/DAY
     Route: 048
     Dates: end: 2009
  2. LIPITOR [Concomitant]
     Dosage: UNK
  3. METOPROLOL ER [Concomitant]
     Dosage: 200 MG, UNK
  4. WARFARIN [Concomitant]
     Dosage: UNK
  5. LOSARTAN [Concomitant]
     Dosage: 100 MG, UNK
  6. CLONIDINE [Concomitant]
     Dosage: 0.1 MG, UNK
  7. DETROL LA [Concomitant]
     Dosage: 4 MG, UNK
  8. DILTIAZEM [Concomitant]
     Dosage: 120 MG, UNK
  9. TEMAZEPAM [Concomitant]
     Dosage: 30 MG, UNK

REACTIONS (4)
  - Drug hypersensitivity [Recovered/Resolved]
  - Cough [Recovered/Resolved]
  - Pyrexia [Recovered/Resolved]
  - Muscle spasms [Unknown]
